FAERS Safety Report 11081144 (Version 1)
Quarter: 2015Q2

REPORT INFORMATION
  Report Type: Spontaneous
  Country: US (occurrence: None)
  Receive Date: 20150430
  Receipt Date: 20150430
  Transmission Date: 20150821
  Serious: Yes (Hospitalization)
  Sender: FDA-Public Use
  Company Number: None

PATIENT
  Age: 71 Year
  Sex: Male
  Weight: 80 kg

DRUGS (1)
  1. BEVACIZUMAB (RHUMAB VEGF) [Suspect]
     Active Substance: BEVACIZUMAB
     Indication: COGNITIVE DISORDER
     Dates: end: 20150303

REACTIONS (6)
  - Dysphagia [None]
  - Aphasia [None]
  - Memory impairment [None]
  - Agitation [None]
  - Incoherent [None]
  - Frustration [None]

NARRATIVE: CASE EVENT DATE: 20150312
